FAERS Safety Report 12166937 (Version 1)
Quarter: 2016Q1

REPORT INFORMATION
  Report Type: Spontaneous
  Country: FR (occurrence: FR)
  Receive Date: 20160310
  Receipt Date: 20160310
  Transmission Date: 20160526
  Serious: Yes (Hospitalization)
  Sender: FDA-Public Use
  Company Number: FR-ROCHE-1720911

PATIENT
  Age: 1 Day
  Sex: Male

DRUGS (3)
  1. RIVOTRIL [Suspect]
     Active Substance: CLONAZEPAM
     Route: 064
     Dates: start: 2014
  2. RIVOTRIL [Suspect]
     Active Substance: CLONAZEPAM
     Indication: PRODUCT USED FOR UNKNOWN INDICATION
     Route: 064
     Dates: start: 201505, end: 20160206
  3. RIVOTRIL [Suspect]
     Active Substance: CLONAZEPAM
     Route: 063
     Dates: start: 20160207, end: 20160207

REACTIONS (4)
  - Somnolence neonatal [Recovered/Resolved]
  - Foetal exposure during pregnancy [Unknown]
  - Poor sucking reflex [Recovered/Resolved]
  - Exposure during breast feeding [Unknown]

NARRATIVE: CASE EVENT DATE: 20160207
